FAERS Safety Report 25763138 (Version 1)
Quarter: 2025Q3

REPORT INFORMATION
  Report Type: Spontaneous
  Country: US (occurrence: US)
  Receive Date: 20250905
  Receipt Date: 20250905
  Transmission Date: 20251020
  Serious: Yes (Other)
  Sender: AXSOME THERAPEUTICS
  Company Number: US-AXS-AXS202508-001487

PATIENT
  Age: 27 Year
  Sex: Male

DRUGS (1)
  1. AUVELITY [Suspect]
     Active Substance: BUPROPION HYDROCHLORIDE\DEXTROMETHORPHAN HYDROBROMIDE
     Indication: Major depression
     Dosage: STARTED TAKING AUVELITY SAMPLES ABOUT 2 WEEKS AGO
     Route: 048

REACTIONS (2)
  - Hallucination [Recovered/Resolved]
  - Burning sensation [Recovered/Resolved]
